FAERS Safety Report 8812030 (Version 1)
Quarter: 2012Q4

REPORT INFORMATION
  Report Type: 
  Country: US (occurrence: US)
  Receive Date: 20120927
  Receipt Date: 20120927
  Transmission Date: 20130627
  Serious: Yes (Other)
  Sender: FDA-Public Use
  Company Number: CHPA2012US019903

PATIENT
  Age: 85 Year
  Sex: Female
  Weight: 48.98 kg

DRUGS (3)
  1. BENEFIBER W/ WHEAT DEXTRIN [Suspect]
     Indication: NUTRITIONAL SUPPORT
     Dosage: 1/2 to 1 TSP, PRN
     Route: 048
     Dates: start: 2011
  2. OXYBUTYNIN [Concomitant]
     Indication: BLADDER DISORDER
     Dosage: 5 mg, UNK
  3. THYROID THERAPY [Concomitant]
     Dosage: UNK, UNK

REACTIONS (14)
  - Accident [Recovered/Resolved]
  - Chest injury [Recovered/Resolved]
  - Insomnia [Not Recovered/Not Resolved]
  - Gastric disorder [Not Recovered/Not Resolved]
  - Scoliosis [Not Recovered/Not Resolved]
  - Condition aggravated [Not Recovered/Not Resolved]
  - Malaise [Not Recovered/Not Resolved]
  - Arthritis [Not Recovered/Not Resolved]
  - Gastrointestinal motility disorder [Unknown]
  - Body height decreased [Unknown]
  - Weight decreased [Unknown]
  - Activities of daily living impaired [Not Recovered/Not Resolved]
  - Constipation [Not Recovered/Not Resolved]
  - Underdose [Unknown]
